FAERS Safety Report 10650669 (Version 2)
Quarter: 2014Q4

REPORT INFORMATION
  Report Type: Spontaneous
  Country: EG (occurrence: EG)
  Receive Date: 20141214
  Receipt Date: 20141214
  Transmission Date: 20150529
  Serious: Yes (Life-Threatening, Hospitalization, Other)
  Sender: FDA-Public Use
  Company Number: PHHY2014EG153858

PATIENT
  Age: 60 Year
  Sex: Male
  Weight: 60 kg

DRUGS (3)
  1. MIFLONIDE [Concomitant]
     Active Substance: BUDESONIDE
     Indication: CHRONIC OBSTRUCTIVE PULMONARY DISEASE
     Dosage: 400 UG, BID
     Route: 055
  2. MIFLONIDE [Concomitant]
     Active Substance: BUDESONIDE
     Indication: FORCED EXPIRATORY VOLUME ABNORMAL
  3. ONBREZ [Suspect]
     Active Substance: INDACATEROL
     Indication: CHRONIC OBSTRUCTIVE PULMONARY DISEASE
     Dosage: 300 UG, QD
     Route: 055
     Dates: start: 20141015, end: 20141017

REACTIONS (7)
  - Arrhythmia [Recovered/Resolved]
  - Palpitations [Unknown]
  - Presyncope [Unknown]
  - Syncope [Unknown]
  - Atrial flutter [Recovered/Resolved]
  - Hypertension [Unknown]
  - Dyspnoea [Unknown]

NARRATIVE: CASE EVENT DATE: 20141015
